FAERS Safety Report 23252658 (Version 11)
Quarter: 2024Q1

REPORT INFORMATION
  Report Type: Report from Study
  Country: ES (occurrence: ES)
  Receive Date: 20231201
  Receipt Date: 20240218
  Transmission Date: 20240410
  Serious: Yes (Hospitalization, Other)
  Sender: FDA-Public Use
  Company Number: ES-ABBVIE-5515436

PATIENT
  Sex: Female

DRUGS (3)
  1. CARBIDOPA\LEVODOPA [Suspect]
     Active Substance: CARBIDOPA\LEVODOPA
     Indication: Parkinson^s disease
     Dosage: DURATION TEXT: 7 DAY
     Route: 050
     Dates: start: 20230412
  2. CARBIDOPA\LEVODOPA [Suspect]
     Active Substance: CARBIDOPA\LEVODOPA
     Route: 050
  3. CARBIDOPA\LEVODOPA [Concomitant]
     Active Substance: CARBIDOPA\LEVODOPA
     Indication: Product used for unknown indication

REACTIONS (28)
  - Cardiac failure [Not Recovered/Not Resolved]
  - Off label use [Recovered/Resolved]
  - Unevaluable event [Unknown]
  - Arrhythmia [Not Recovered/Not Resolved]
  - Musculoskeletal stiffness [Not Recovered/Not Resolved]
  - Aggression [Not Recovered/Not Resolved]
  - Device breakage [Recovered/Resolved]
  - Nervousness [Not Recovered/Not Resolved]
  - Therapeutic product effect incomplete [Unknown]
  - Unevaluable event [Not Recovered/Not Resolved]
  - Respiratory tract infection [Not Recovered/Not Resolved]
  - White blood cell count increased [Unknown]
  - Dyspnoea [Not Recovered/Not Resolved]
  - Dysstasia [Not Recovered/Not Resolved]
  - Restlessness [Not Recovered/Not Resolved]
  - Stoma site induration [Unknown]
  - Lung disorder [Not Recovered/Not Resolved]
  - Unevaluable event [Unknown]
  - Dysarthria [Unknown]
  - Wheezing [Unknown]
  - Fall [Not Recovered/Not Resolved]
  - Impatience [Not Recovered/Not Resolved]
  - Parkinson^s disease [Not Recovered/Not Resolved]
  - Red blood cell sedimentation rate increased [Unknown]
  - Respiratory tract infection [Recovered/Resolved]
  - Urinary tract infection [Not Recovered/Not Resolved]
  - Haematuria [Unknown]
  - Leukocytosis [Unknown]

NARRATIVE: CASE EVENT DATE: 20230101
